FAERS Safety Report 15978576 (Version 3)
Quarter: 2019Q2

REPORT INFORMATION
  Report Type: Spontaneous
  Country: JP (occurrence: JP)
  Receive Date: 20190219
  Receipt Date: 20190613
  Transmission Date: 20190711
  Serious: Yes (Other)
  Sender: FDA-Public Use
  Company Number: JP-009507513-1902JPN001134J

PATIENT
  Age: 77 Year
  Sex: Female
  Weight: 56 kg

DRUGS (4)
  1. THYRADIN S [Concomitant]
     Active Substance: LEVOTHYROXINE SODIUM
     Dosage: 100 MICROGRAM, QD
     Route: 048
  2. PRAVASTATIN NA [Concomitant]
     Active Substance: PRAVASTATIN SODIUM
     Dosage: 10 MILLIGRAM, QD
     Route: 048
  3. KEYTRUDA [Suspect]
     Active Substance: PEMBROLIZUMAB
     Indication: TRANSITIONAL CELL CARCINOMA
     Dosage: 200 MILLIGRAM, Q3W
     Route: 041
     Dates: start: 20181016, end: 20190115
  4. KEYTRUDA [Suspect]
     Active Substance: PEMBROLIZUMAB
     Dosage: 200 MILLIGRAM, Q3W
     Route: 041

REACTIONS (5)
  - Stomatitis [Not Recovered/Not Resolved]
  - Rash [Recovering/Resolving]
  - Leukoplakia oral [Recovering/Resolving]
  - Oral herpes [Not Recovered/Not Resolved]
  - Cheilitis [Recovering/Resolving]

NARRATIVE: CASE EVENT DATE: 201901
